FAERS Safety Report 8564546-7 (Version None)
Quarter: 2012Q3

REPORT INFORMATION
  Report Type: 
  Country: None (occurrence: None)
  Receive Date: 20120803
  Receipt Date: 20120730
  Transmission Date: 20120928
  Serious: Yes (Other)
  Sender: FDA-Public Use
  Company Number: FR-ABBOTT-12P-056-0954910-00

PATIENT
  Sex: Male

DRUGS (6)
  1. ACETYLSALICYLATE DE LYSINE [Concomitant]
     Indication: CARDIOVASCULAR EVENT PROPHYLAXIS
  2. HUMIRA [Suspect]
     Dates: start: 20120401
  3. PRAVASTATIN [Concomitant]
     Indication: DYSLIPIDAEMIA
     Route: 048
  4. HUMIRA [Suspect]
     Indication: PSORIASIS
     Dates: start: 20100901, end: 20110201
  5. DESLORATADINE [Concomitant]
     Indication: URTICARIA CHRONIC
     Route: 048
  6. CLOPIDOGREL [Concomitant]
     Indication: HYPERTENSION
     Route: 048

REACTIONS (6)
  - COUGH [None]
  - NAUSEA [None]
  - ARTHRALGIA [None]
  - HEADACHE [None]
  - MYALGIA [None]
  - DYSPNOEA [None]
